FAERS Safety Report 25656472 (Version 7)
Quarter: 2025Q4

REPORT INFORMATION
  Report Type: Spontaneous
  Country: CN (occurrence: CN)
  Receive Date: 20250807
  Receipt Date: 20251113
  Transmission Date: 20260117
  Serious: Yes (Life-Threatening, Hospitalization, Disabling, Other)
  Sender: NOVARTIS
  Company Number: CN-002147023-NVSC2025CN122175

PATIENT
  Age: 53 Year
  Sex: Female
  Weight: 52 kg

DRUGS (10)
  1. KISQALI [Suspect]
     Active Substance: RIBOCICLIB SUCCINATE
     Indication: Breast cancer
     Dosage: 600 MG, QD (ONCE A DAY, TAKE FOR THREE WEEKS AND STOP FOR ONE WEEK)
     Route: 048
     Dates: start: 20250619, end: 20250721
  2. KISQALI [Suspect]
     Active Substance: RIBOCICLIB SUCCINATE
     Dosage: 600 MG, QD (ONCE A DAY, TAKE FOR THREE WEEKS AND STOP FOR ONE WEEK)
     Route: 048
     Dates: start: 20250619, end: 20250721
  3. LETROZOLE [Suspect]
     Active Substance: LETROZOLE
     Indication: Breast cancer
     Dosage: 2.5 MG, QD
     Route: 065
     Dates: start: 20241011
  4. DENOSUMAB [Concomitant]
     Active Substance: DENOSUMAB
     Indication: Breast cancer
     Dosage: 120 MG
     Route: 065
     Dates: start: 20241011
  5. DENOSUMAB [Concomitant]
     Active Substance: DENOSUMAB
     Indication: Prophylaxis
     Dosage: 120 MG
     Route: 065
     Dates: start: 20250715
  6. PALBOCICLIB [Concomitant]
     Active Substance: PALBOCICLIB
     Indication: Breast cancer
     Dosage: 125 MG, Q4W
     Route: 065
     Dates: start: 20241011
  7. FULVESTRANT [Concomitant]
     Active Substance: FULVESTRANT
     Indication: Breast cancer
     Dosage: 0.5 G
     Route: 065
     Dates: start: 20250715
  8. FULVESTRANT [Concomitant]
     Active Substance: FULVESTRANT
     Indication: Prophylaxis
  9. METHYLPREDNISOLONE [Concomitant]
     Active Substance: METHYLPREDNISOLONE
     Indication: Breast cancer
     Dosage: 60 MG, QD
     Route: 065
  10. ETANERCEPT [Concomitant]
     Active Substance: ETANERCEPT
     Indication: Breast cancer
     Dosage: 25 MG, BID
     Route: 065

REACTIONS (25)
  - Toxic epidermal necrolysis [Recovered/Resolved]
  - Drug hypersensitivity [Recovering/Resolving]
  - Shock [Unknown]
  - Hypokalaemia [Unknown]
  - Hyperpyrexia [Recovered/Resolved]
  - Pruritus [Recovering/Resolving]
  - Blister [Recovering/Resolving]
  - Skin discolouration [Unknown]
  - Pyrexia [Recovered/Resolved]
  - Skin exfoliation [Recovering/Resolving]
  - Skin infection [Unknown]
  - Liver function test abnormal [Unknown]
  - Hypertriglyceridaemia [Unknown]
  - Anaemia [Unknown]
  - Serum ferritin increased [Unknown]
  - Immunoglobulins increased [Unknown]
  - Asthenia [Unknown]
  - Product quality issue [Unknown]
  - Nerve injury [Unknown]
  - Paraesthesia [Unknown]
  - Fatigue [Unknown]
  - Malaise [Unknown]
  - Skin warm [Unknown]
  - Restlessness [Unknown]
  - Suspected counterfeit product [Unknown]

NARRATIVE: CASE EVENT DATE: 20250701
